FAERS Safety Report 7264868-6 (Version None)
Quarter: 2011Q1

REPORT INFORMATION
  Report Type: 
  Country: None (occurrence: None)
  Receive Date: 20110131
  Receipt Date: 20100929
  Transmission Date: 20110831
  Serious: No
  Sender: FDA-Public Use
  Company Number: US-BAYER-201037720NA

PATIENT
  Sex: Female

DRUGS (3)
  1. CLIMARA [Suspect]
     Indication: HORMONE REPLACEMENT THERAPY
     Dosage: UNK
     Route: 061
     Dates: start: 20100901
  2. VIVELLE-DOT [Concomitant]
     Dosage: UNK
     Route: 061
     Dates: start: 20100101
  3. CLIMARA [Suspect]
     Dosage: UNK

REACTIONS (1)
  - HOT FLUSH [None]
